FAERS Safety Report 21338062 (Version 1)
Quarter: 2022Q3

REPORT INFORMATION
  Report Type: Other
  Country: CN (occurrence: CN)
  Receive Date: 20220915
  Receipt Date: 20220915
  Transmission Date: 20221027
  Serious: Yes (Hospitalization)
  Sender: FDA-Public Use
  Company Number: CN-GE HEALTHCARE-2022CSU006517

PATIENT
  Age: 64 Year
  Sex: Female
  Weight: 48 kg

DRUGS (2)
  1. VISIPAQUE [Suspect]
     Active Substance: IODIXANOL
     Indication: Computerised tomogram abdomen
     Dosage: 100 ML, SINGLE
     Route: 042
     Dates: start: 20220813, end: 20220813
  2. VISIPAQUE [Suspect]
     Active Substance: IODIXANOL
     Indication: Cholecystitis

REACTIONS (4)
  - Blood glucose decreased [Recovered/Resolved]
  - Palpitations [Unknown]
  - Pruritus [Recovered/Resolved]
  - Hyperhidrosis [Unknown]

NARRATIVE: CASE EVENT DATE: 20220813
